FAERS Safety Report 8850111 (Version 1)
Quarter: 2012Q4

REPORT INFORMATION
  Report Type: 
  Country: US (occurrence: US)
  Receive Date: 20121019
  Receipt Date: 20121019
  Transmission Date: 20130627
  Serious: Yes (Other)
  Sender: FDA-Public Use
  Company Number: US-EISAI INC-E7272-00135-CLI-US

PATIENT
  Sex: Female

DRUGS (1)
  1. ONTAK [Suspect]
     Indication: OVARIAN CANCER
     Route: 033

REACTIONS (1)
  - Oesophagitis [Unknown]
